FAERS Safety Report 4650011-6 (Version None)
Quarter: 2005Q2

REPORT INFORMATION
  Report Type: 
  Country: None (occurrence: None)
  Receive Date: 20050428
  Receipt Date: 20050415
  Transmission Date: 20051028
  Serious: Yes (Death, Hospitalization)
  Sender: FDA-Public Use
  Company Number: 2005US000453

PATIENT
  Age: 62 Year
  Sex: Male
  Weight: 42.9 kg

DRUGS (7)
  1. PROGRAF [Suspect]
     Indication: PROPHYLAXIS AGAINST TRANSPLANT REJECTION
     Dosage: SEE IMAGE
     Route: 048
     Dates: start: 20050127, end: 20050407
  2. CELLCEPT [Suspect]
     Indication: PROPHYLAXIS AGAINST TRANSPLANT REJECTION
     Dosage: 1.00 G, UID/QD, ORAL
     Route: 048
     Dates: start: 20050225, end: 20050405
  3. PREDNISONE [Suspect]
     Indication: PROPHYLAXIS AGAINST TRANSPLANT REJECTION
     Dosage: 10.00 MG , UID/QD, ORAL
     Route: 048
     Dates: start: 20050127, end: 20050408
  4. PREDNISONE [Suspect]
     Indication: PROPHYLAXIS AGAINST TRANSPLANT REJECTION
     Dosage: 10.00 MG , UID/QD, ORAL
     Route: 048
     Dates: start: 20050329, end: 20050408
  5. ACETYL SALICYLIC ACID USP BAT [Concomitant]
  6. OMEPRAZOLE [Concomitant]
  7. FLUCONAZOLE [Concomitant]

REACTIONS (3)
  - CARDIAC ARREST [None]
  - PNEUMONIA [None]
  - SEPTIC SHOCK [None]
